FAERS Safety Report 6067135-1 (Version None)
Quarter: 2009Q1

REPORT INFORMATION
  Report Type: 
  Country: None (occurrence: None)
  Receive Date: 20090205
  Receipt Date: 20090128
  Transmission Date: 20090719
  Serious: Yes (Life-Threatening, Hospitalization)
  Sender: FDA-Public Use
  Company Number: GB-ROCHE-611385

PATIENT
  Sex: Male
  Weight: 70 kg

DRUGS (11)
  1. CAPECITABINE [Suspect]
     Indication: GASTRIC CANCER
     Dosage: TREATMENT DISCONTINUED.
     Route: 048
     Dates: start: 20081106
  2. BEVACIZUMAB [Suspect]
     Indication: GASTRIC CANCER
     Dosage: TREATMENT STOPPED.
     Route: 042
     Dates: start: 20081106
  3. EPIRUBICIN [Suspect]
     Indication: GASTRIC CANCER
     Route: 042
     Dates: start: 20081106
  4. CISPLATIN [Suspect]
     Indication: GASTRIC CANCER
     Dosage: TEMPORALILY INTERUPPTED.
     Route: 042
     Dates: start: 20081106
  5. DEXAMETHASONE [Suspect]
     Route: 048
     Dates: start: 20081106
  6. FINASTERIDE [Concomitant]
     Dosage: DOSE 1
     Route: 048
     Dates: start: 20081214
  7. LANSOPRAZOLE [Concomitant]
     Dosage: DOSE:ONE
     Route: 048
     Dates: start: 20081106
  8. DOMPERIDONE [Concomitant]
     Route: 048
     Dates: start: 20081106
  9. ONDANSETRON HYDROCHLORIDE [Concomitant]
     Route: 048
     Dates: start: 20081106
  10. DIFFLAM [Concomitant]
     Route: 048
  11. CHLORHEXIDINE GLUCONATE [Concomitant]
     Dosage: DRUG NAME ;CHLORHEXIDINE GLUCONATE.
     Route: 048

REACTIONS (1)
  - GASTROINTESTINAL PERFORATION [None]
